FAERS Safety Report 23756681 (Version 1)
Quarter: 2024Q2

REPORT INFORMATION
  Report Type: Spontaneous
  Country: US (occurrence: US)
  Receive Date: 20240418
  Receipt Date: 20240418
  Transmission Date: 20240716
  Serious: Yes (Life-Threatening, Hospitalization, Other)
  Sender: FDA-Public Use
  Company Number: US-MLMSERVICE-20240328-4919503-1

PATIENT
  Age: 53 Year
  Sex: Male

DRUGS (2)
  1. DILTIAZEM [Suspect]
     Active Substance: DILTIAZEM
     Indication: Atrial fibrillation
     Dosage: 30 MILLIGRAM, SINGLE, BOLUS
  2. DILTIAZEM [Suspect]
     Active Substance: DILTIAZEM
     Dosage: FOR APPROXIMATELY SIX HOURS

REACTIONS (2)
  - Cardiogenic shock [Recovered/Resolved]
  - Oliguria [Unknown]
